FAERS Safety Report 5984131-0 (Version None)
Quarter: 2008Q4

REPORT INFORMATION
  Report Type: 
  Country: None (occurrence: None)
  Receive Date: 20081208
  Receipt Date: 20080909
  Transmission Date: 20090506
  Serious: Yes (Other)
  Sender: FDA-Public Use
  Company Number: US-AMGEN-QUU302712

PATIENT
  Sex: Female
  Weight: 52.2 kg

DRUGS (6)
  1. ENBREL [Suspect]
     Indication: PSORIASIS
     Route: 058
     Dates: start: 20050101
  2. ENBREL [Suspect]
     Indication: PSORIATIC ARTHROPATHY
  3. ULTRAVATE [Concomitant]
     Route: 061
     Dates: start: 20060111
  4. HUMIRA [Concomitant]
  5. SALICYLIC ACID [Concomitant]
     Route: 061
     Dates: start: 20070221
  6. CALCIPOTRIENE [Concomitant]
     Route: 061
     Dates: start: 20061025

REACTIONS (2)
  - LYMPHOMA [None]
  - REFLUX OESOPHAGITIS [None]
